FAERS Safety Report 9586610 (Version 1)
Quarter: 2013Q4

REPORT INFORMATION
  Report Type: Spontaneous
  Country: US (occurrence: None)
  Receive Date: 20131001
  Receipt Date: 20131001
  Transmission Date: 20140711
  Serious: Yes (Other)
  Sender: FDA-Public Use
  Company Number: SYM-2013-06886

PATIENT
  Sex: Male

DRUGS (2)
  1. WELLBUTRIN XL [Suspect]
     Indication: PRODUCT USED FOR UNKNOWN INDICATION
     Route: 048
     Dates: end: 20130619
  2. PROZAC [Suspect]
     Indication: PRODUCT USED FOR UNKNOWN INDICATION
     Route: 048
     Dates: start: 20130619

REACTIONS (3)
  - Arthralgia [None]
  - Myalgia [None]
  - Fibromyalgia [None]
